FAERS Safety Report 20729738 (Version 1)
Quarter: 2022Q2

REPORT INFORMATION
  Report Type: Spontaneous
  Country: CN (occurrence: None)
  Receive Date: 20220420
  Receipt Date: 20220420
  Transmission Date: 20220721
  Serious: Yes (Other)
  Sender: FDA-Public Use
  Company Number: 2022A152697

PATIENT
  Age: 60 Year
  Sex: Female

DRUGS (1)
  1. TAGRISSO [Suspect]
     Active Substance: OSIMERTINIB
     Indication: Adjuvant therapy
     Dosage: 80.0MG UNKNOWN
     Route: 048

REACTIONS (5)
  - Renal injury [Unknown]
  - Liver injury [Unknown]
  - Pyrexia [Unknown]
  - Heart rate irregular [Unknown]
  - Poor quality sleep [Unknown]
